FAERS Safety Report 10557940 (Version 1)
Quarter: 2014Q4

REPORT INFORMATION
  Report Type: Spontaneous
  Country: IT (occurrence: IT)
  Receive Date: 20141031
  Receipt Date: 20141031
  Transmission Date: 20150529
  Serious: Yes (Other)
  Sender: FDA-Public Use
  Company Number: IT-BAYER-2014-155487

PATIENT
  Age: 42 Year
  Sex: Female

DRUGS (3)
  1. BECLOMETASONE [Concomitant]
     Active Substance: BECLOMETHASONE DIPROPIONATE
  2. FLUIBRON [Concomitant]
     Active Substance: AMBROXOL HYDROCHLORIDE
  3. OCTEGRA [Suspect]
     Active Substance: MOXIFLOXACIN
     Dosage: DAILY DOSE 400 MG
     Route: 048
     Dates: start: 20141010, end: 20141016

REACTIONS (2)
  - Drug ineffective [Recovering/Resolving]
  - Pneumonia [Recovering/Resolving]

NARRATIVE: CASE EVENT DATE: 20141017
